FAERS Safety Report 6621036-6 (Version None)
Quarter: 2010Q1

REPORT INFORMATION
  Report Type: 
  Country: None (occurrence: None)
  Receive Date: 20100309
  Receipt Date: 20100303
  Transmission Date: 20100710
  Serious: Yes (Life-Threatening, Congenital Anomaly)
  Sender: FDA-Public Use
  Company Number: A0693650A

PATIENT
  Sex: Female

DRUGS (9)
  1. PAXIL [Suspect]
     Indication: ANXIETY
     Dosage: 20MG PER DAY
     Dates: start: 20020101, end: 20050101
  2. PAROXETINE HYDROCHLORIDE [Suspect]
     Indication: ANXIETY
     Dosage: 20MG PER DAY
     Dates: start: 20020101, end: 20050101
  3. ZITHROMAX [Concomitant]
     Dates: start: 20041001
  4. BENADRYL [Concomitant]
     Dates: start: 20040101, end: 20050101
  5. HYDROXYZINE HCL [Concomitant]
     Dates: start: 20050426
  6. LUNESTA [Concomitant]
     Dates: start: 20050101, end: 20050101
  7. VITAMIN TAB [Concomitant]
  8. TYLENOL-500 [Concomitant]
  9. NAUSEA MEDICATION (UNKNOWN) [Concomitant]

REACTIONS (7)
  - ATRIAL SEPTAL DEFECT [None]
  - CARDIAC FAILURE CONGESTIVE [None]
  - CARDIOMEGALY [None]
  - CONGENITAL CARDIOVASCULAR ANOMALY [None]
  - DRUG EXPOSURE DURING PREGNANCY [None]
  - PLEURAL EFFUSION [None]
  - VENTRICULAR SEPTAL DEFECT [None]
